FAERS Safety Report 18020107 (Version 1)
Quarter: 2020Q3

REPORT INFORMATION
  Report Type: Spontaneous
  Country: CA (occurrence: CA)
  Receive Date: 20200714
  Receipt Date: 20200714
  Transmission Date: 20201103
  Serious: Yes (Life-Threatening, Hospitalization, Other)
  Sender: FDA-Public Use
  Company Number: CA-B.I. PHARMACEUTICALS,INC./RIDGEFIELD-2020-BI-035458

PATIENT
  Age: 10 Year
  Sex: Male

DRUGS (8)
  1. DEXMEDETOMIDINE. [Concomitant]
     Active Substance: DEXMEDETOMIDINE
     Indication: DYSTONIA
     Dosage: INTRAVENOUS DRIP?DOSE: 1.2 UG/KG
     Route: 042
  2. CATAPRES [Suspect]
     Active Substance: CLONIDINE HYDROCHLORIDE
     Indication: DYSTONIA
     Dosage: DOSAGE FORM: NOT SPECIFIED
     Route: 065
  3. KETAMINE [Suspect]
     Active Substance: KETAMINE
     Indication: DYSTONIA
     Route: 065
  4. LORAZEPAM. [Suspect]
     Active Substance: LORAZEPAM
     Indication: DYSTONIA
     Dosage: DOSAGE FORM: NOT SPECIFIED
     Route: 065
  5. MIDAZOLAM. [Suspect]
     Active Substance: MIDAZOLAM
     Indication: DYSTONIA
     Dosage: INTRAVENOUS BOLUS
     Route: 042
  6. CHLORAL HYDRATE [Suspect]
     Active Substance: CHLORAL HYDRATE
     Indication: DYSTONIA
     Dosage: DOSAGE FORM: NOT SPECIFIED
     Route: 065
  7. CHLORPROMAZINE. [Suspect]
     Active Substance: CHLORPROMAZINE
     Indication: HYPERKINESIA
     Route: 065
  8. MIDAZOLAM HYDROCHLORIDE. [Suspect]
     Active Substance: MIDAZOLAM HYDROCHLORIDE
     Indication: DYSTONIA
     Dosage: INTRAVENOUS BOLUS
     Route: 042

REACTIONS (3)
  - Dystonia [Recovered/Resolved]
  - Treatment failure [Recovered/Resolved]
  - Condition aggravated [Recovered/Resolved]
